FAERS Safety Report 7085620-0 (Version None)
Quarter: 2010Q4

REPORT INFORMATION
  Report Type: 
  Country: None (occurrence: None)
  Receive Date: 20101105
  Receipt Date: 20101025
  Transmission Date: 20110411
  Serious: Yes (Other)
  Sender: FDA-Public Use
  Company Number: US-KINGPHARMUSA00001-K201001341

PATIENT
  Sex: Male

DRUGS (1)
  1. EPIPEN [Suspect]
     Indication: ALLERGY TO ARTHROPOD STING
     Dosage: 0.3 MG, SINGLE
     Route: 030
     Dates: start: 20101023, end: 20101023

REACTIONS (6)
  - DISORIENTATION [None]
  - DRUG INEFFECTIVE [None]
  - GAIT DISTURBANCE [None]
  - NERVOUSNESS [None]
  - SYNCOPE [None]
  - UNRESPONSIVE TO STIMULI [None]
